FAERS Safety Report 5579939-X (Version None)
Quarter: 2008Q1

REPORT INFORMATION
  Report Type: 
  Country: None (occurrence: None)
  Receive Date: 20080103
  Receipt Date: 20071226
  Transmission Date: 20080703
  Serious: Yes (Other)
  Sender: FDA-Public Use
  Company Number: PHBS2007ES20709

PATIENT
  Age: 31 Year
  Sex: Female

DRUGS (1)
  1. TEGRETOL [Suspect]
     Indication: CONVULSION
     Dosage: 200MG/D

REACTIONS (17)
  - ALOPECIA [None]
  - ALTERED STATE OF CONSCIOUSNESS [None]
  - ANXIETY [None]
  - ARRHYTHMIA [None]
  - BLOOD OESTROGEN [None]
  - BLOOD PROLACTIN INCREASED [None]
  - CHROMATURIA [None]
  - CONFUSIONAL STATE [None]
  - COORDINATION ABNORMAL [None]
  - EPILEPSY [None]
  - HALLUCINATION [None]
  - HEADACHE [None]
  - HYPERHIDROSIS [None]
  - PHARYNGOLARYNGEAL PAIN [None]
  - RESPIRATORY DISORDER [None]
  - TACHYCARDIA [None]
  - TREMOR [None]
